FAERS Safety Report 8204328-9 (Version None)
Quarter: 2012Q1

REPORT INFORMATION
  Report Type: 
  Country: None (occurrence: None)
  Receive Date: 20120313
  Receipt Date: 20120309
  Transmission Date: 20120608
  Serious: No
  Sender: FDA-Public Use
  Company Number: US-PFIZER INC-2012063440

PATIENT
  Sex: Male

DRUGS (3)
  1. FLECTOR [Suspect]
     Indication: PAIN IN EXTREMITY
     Dosage: UNK
     Dates: start: 20120308
  2. FLECTOR [Suspect]
     Indication: ARTHRALGIA
  3. FLECTOR [Suspect]
     Indication: MUSCULOSKELETAL PAIN

REACTIONS (1)
  - DRUG INEFFECTIVE [None]
